FAERS Safety Report 8279531 (Version 6)
Quarter: 2013Q4

REPORT INFORMATION
  Report Type: Spontaneous
  Country: US (occurrence: US)
  Receive Date: 20111208
  Receipt Date: 20131223
  Transmission Date: 20140711
  Serious: Yes (Hospitalization, Other)
  Sender: FDA-Public Use
  Company Number: US-US-EMD SERONO, INC.-7098913

PATIENT
  Age: 47 Year
  Sex: Female

DRUGS (5)
  1. REBIF [Suspect]
     Indication: MULTIPLE SCLEROSIS
     Route: 058
     Dates: start: 20100505, end: 20120813
  2. REBIF [Suspect]
     Route: 058
     Dates: start: 20120820
  3. TEGRETOL [Concomitant]
     Indication: MUSCLE SPASMS
  4. OMEPRAZOLE [Concomitant]
     Indication: IRRITABLE BOWEL SYNDROME
  5. BENTYL [Concomitant]
     Indication: IRRITABLE BOWEL SYNDROME

REACTIONS (6)
  - Uterine cyst [Recovered/Resolved]
  - Uterine leiomyoma [Recovered/Resolved]
  - Menstrual discomfort [Recovering/Resolving]
  - Hernia [Unknown]
  - Haemorrhoids [Unknown]
  - Injection site abscess [Recovering/Resolving]
